FAERS Safety Report 15450013 (Version 4)
Quarter: 2019Q1

REPORT INFORMATION
  Report Type: Spontaneous
  Country: US (occurrence: US)
  Receive Date: 20181001
  Receipt Date: 20190319
  Transmission Date: 20190417
  Serious: No
  Sender: FDA-Public Use
  Company Number: US-PFIZER INC-2018391416

PATIENT
  Age: 65 Year
  Sex: Male

DRUGS (1)
  1. LYRICA [Suspect]
     Active Substance: PREGABALIN
     Indication: MYALGIA
     Dosage: 200 MG, 3X/DAY (1 CAPSULE THREE TIMES A DAY 120 DAYS)
     Route: 048

REACTIONS (3)
  - Sciatica [Unknown]
  - Gait inability [Unknown]
  - Product use in unapproved indication [Unknown]
